FAERS Safety Report 9218157 (Version 2)
Quarter: 2013Q2

REPORT INFORMATION
  Report Type: Report from Study
  Country: US (occurrence: US)
  Receive Date: 20130408
  Receipt Date: 20130621
  Transmission Date: 20140414
  Serious: Yes (Other)
  Sender: FDA-Public Use
  Company Number: US-US-EMD SERONO, INC.-7203002

PATIENT
  Sex: Female
  Weight: 101 kg

DRUGS (3)
  1. REBIF [Suspect]
     Indication: MULTIPLE SCLEROSIS
     Route: 058
     Dates: start: 20120730, end: 20130506
  2. TOPIRAMATE [Concomitant]
     Indication: NEURALGIA
     Route: 048
     Dates: start: 201212
  3. CITALOPRAM [Concomitant]
     Indication: DEPRESSION
     Route: 048
     Dates: start: 201203

REACTIONS (2)
  - Adrenal mass [Not Recovered/Not Resolved]
  - Bladder disorder [Not Recovered/Not Resolved]
